FAERS Safety Report 9180145 (Version 1)
Quarter: 2013Q1

REPORT INFORMATION
  Report Type: Spontaneous
  Country: US (occurrence: US)
  Receive Date: 20130321
  Receipt Date: 20130321
  Transmission Date: 20140127
  Serious: Yes (Hospitalization)
  Sender: FDA-Public Use
  Company Number: US-UCBSA-080560

PATIENT
  Age: 25 Year
  Sex: Male
  Weight: 72.57 kg

DRUGS (2)
  1. VIMPAT [Suspect]
     Dosage: FOR 2 YEARS
  2. KEPPRA [Suspect]
     Dates: start: 20130304

REACTIONS (2)
  - Convulsion [Recovered/Resolved]
  - Opiates positive [Unknown]
